FAERS Safety Report 24264629 (Version 2)
Quarter: 2025Q2

REPORT INFORMATION
  Report Type: Report from Study
  Country: US (occurrence: US)
  Receive Date: 20240829
  Receipt Date: 20250420
  Transmission Date: 20250717
  Serious: Yes (Other)
  Sender: ABBVIE
  Company Number: US-ABBVIE-5898907

PATIENT
  Age: 54 Year
  Sex: Female

DRUGS (1)
  1. SKYRIZI [Suspect]
     Active Substance: RISANKIZUMAB-RZAA
     Indication: Crohn^s disease
     Route: 041
     Dates: start: 20210606, end: 2024

REACTIONS (5)
  - Systemic lupus erythematosus [Recovering/Resolving]
  - Drug hypersensitivity [Unknown]
  - Nausea [Recovered/Resolved]
  - Gait inability [Unknown]
  - Joint swelling [Unknown]

NARRATIVE: CASE EVENT DATE: 20240101
